FAERS Safety Report 11442702 (Version 1)
Quarter: 2015Q3

REPORT INFORMATION
  Report Type: Report from Study
  Country: CO (occurrence: CO)
  Receive Date: 20150901
  Receipt Date: 20150901
  Transmission Date: 20151125
  Serious: Yes (Hospitalization, Other)
  Sender: FDA-Public Use
  Company Number: CO-TAKEDA-2015MPI005796

PATIENT

DRUGS (1)
  1. VELCADE [Suspect]
     Active Substance: BORTEZOMIB
     Indication: NON-HODGKIN^S LYMPHOMA
     Dosage: 1.9 ?G/M2, UNK
     Route: 042
     Dates: start: 20091204, end: 20100409

REACTIONS (5)
  - Thrombocytosis [Recovered/Resolved]
  - Odynophagia [Recovered/Resolved]
  - Pruritus generalised [Recovered/Resolved]
  - Leukocytosis [Recovered/Resolved]
  - Bronchitis [Recovered/Resolved]

NARRATIVE: CASE EVENT DATE: 20091207
